FAERS Safety Report 9498617 (Version 2)
Quarter: 2013Q4

REPORT INFORMATION
  Report Type: Spontaneous
  Country: US (occurrence: US)
  Receive Date: 20130904
  Receipt Date: 20131101
  Transmission Date: 20140711
  Serious: Yes (Death, Other)
  Sender: FDA-Public Use
  Company Number: US-PFIZER INC-2013252360

PATIENT
  Age: 52 Year
  Sex: Female
  Weight: 54.42 kg

DRUGS (2)
  1. REVATIO [Suspect]
     Indication: PULMONARY HYPERTENSION
     Dosage: 20 MG, DAILY
     Dates: start: 20130813
  2. TRACLEER [Concomitant]
     Indication: PULMONARY HYPERTENSION
     Dosage: UNK

REACTIONS (2)
  - Shock [Fatal]
  - Epistaxis [Unknown]
